FAERS Safety Report 14899496 (Version 1)
Quarter: 2018Q2

REPORT INFORMATION
  Report Type: Spontaneous
  Country: ES (occurrence: ES)
  Receive Date: 20180516
  Receipt Date: 20180516
  Transmission Date: 20180711
  Serious: Yes (Other)
  Sender: FDA-Public Use
  Company Number: ES-HETERO CORPORATE-HET2018ES00423

PATIENT
  Age: 29 Year
  Sex: Female

DRUGS (4)
  1. LACOSAMIDE. [Suspect]
     Active Substance: LACOSAMIDE
     Indication: EPILEPSY
     Route: 065
  2. CARBAMAZEPINE. [Suspect]
     Active Substance: CARBAMAZEPINE
     Indication: EPILEPSY
     Route: 065
  3. PHENOBARBITAL /00023202/ [Suspect]
     Active Substance: PHENOBARBITAL SODIUM
     Indication: EPILEPSY
     Route: 065
  4. LEVETIRACETAM. [Suspect]
     Active Substance: LEVETIRACETAM
     Indication: EPILEPSY
     Route: 065

REACTIONS (7)
  - Abortion spontaneous [Unknown]
  - Rhesus incompatibility [None]
  - Pregnancy [None]
  - Premature delivery [None]
  - Maternal exposure during pregnancy [None]
  - Exposure during pregnancy [Unknown]
  - Caesarean section [None]
